FAERS Safety Report 13007761 (Version 1)
Quarter: 2016Q4

REPORT INFORMATION
  Report Type: Spontaneous
  Country: IL (occurrence: IL)
  Receive Date: 20161207
  Receipt Date: 20161207
  Transmission Date: 20170207
  Serious: Yes (Hospitalization)
  Sender: FDA-Public Use
  Company Number: PHHY2016IL163398

PATIENT

DRUGS (2)
  1. TEA, GREEN [Interacting]
     Active Substance: GREEN TEA LEAF
     Indication: PRODUCT USED FOR UNKNOWN INDICATION
     Route: 065
  2. DIGOXIN. [Suspect]
     Active Substance: DIGOXIN
     Indication: PRODUCT USED FOR UNKNOWN INDICATION
     Route: 065

REACTIONS (2)
  - Drug interaction [Unknown]
  - Cardioactive drug level decreased [Unknown]
